FAERS Safety Report 23981519 (Version 1)
Quarter: 2024Q2

REPORT INFORMATION
  Report Type: Spontaneous
  Country: US (occurrence: US)
  Receive Date: 20240617
  Receipt Date: 20240617
  Transmission Date: 20240716
  Serious: Yes (Other)
  Sender: FDA-Public Use
  Company Number: US-SA-SAC20240612001246

PATIENT
  Sex: Female
  Weight: 117 kg

DRUGS (10)
  1. DUPIXENT [Suspect]
     Active Substance: DUPILUMAB
     Indication: Asthma
     Dosage: 300 MG, QOW
     Route: 058
  2. ABASAGLAR KWIKPEN [Concomitant]
  3. INSULIN LISPRO [Concomitant]
     Active Substance: INSULIN LISPRO
  4. METHIMAZOLE [Concomitant]
     Active Substance: METHIMAZOLE
  5. PROGESTERONE [Concomitant]
     Active Substance: PROGESTERONE
  6. ATORVASTATIN CALCIUM [Concomitant]
     Active Substance: ATORVASTATIN CALCIUM
  7. JARDIANCE [Concomitant]
     Active Substance: EMPAGLIFLOZIN
  8. OMEPRAZOLE [Concomitant]
     Active Substance: DONEPEZIL HYDROCHLORIDE\OMEPRAZOLE\OMEPRAZOLE MAGNESIUM
  9. PREGABALIN [Concomitant]
     Active Substance: PREGABALIN
  10. TRAMADOL HCL [Concomitant]
     Active Substance: TRAMADOL HYDROCHLORIDE

REACTIONS (2)
  - Lower respiratory tract infection [Unknown]
  - Product dose omission issue [Unknown]

NARRATIVE: CASE EVENT DATE: 20240101
